FAERS Safety Report 9839961 (Version 3)
Quarter: 2014Q1

REPORT INFORMATION
  Report Type: Report from Study
  Country: TR (occurrence: TR)
  Receive Date: 20140124
  Receipt Date: 20140206
  Transmission Date: 20141002
  Serious: Yes (Hospitalization)
  Sender: FDA-Public Use
  Company Number: TR-ROCHE-1333463

PATIENT
  Age: 67 Year
  Sex: Male

DRUGS (33)
  1. RHUPH20/RITUXIMAB [Suspect]
     Indication: DIFFUSE LARGE B-CELL LYMPHOMA
     Dosage: DATE OF LAST DOSE PRIOR TO SAE: 03/JAN/2014.
     Route: 058
     Dates: start: 20130822
  2. RITUXIMAB [Suspect]
     Indication: DIFFUSE LARGE B-CELL LYMPHOMA
     Dosage: SINGLE DOSE AS INDUCTION CYCLE
     Route: 042
  3. CYCLOPHOSPHAMIDE [Suspect]
     Indication: DIFFUSE LARGE B-CELL LYMPHOMA
     Route: 065
  4. DOXORUBICIN [Suspect]
     Indication: DIFFUSE LARGE B-CELL LYMPHOMA
     Route: 065
  5. VINCRISTINE [Suspect]
     Indication: DIFFUSE LARGE B-CELL LYMPHOMA
     Route: 065
  6. PREDNISONE [Suspect]
     Indication: DIFFUSE LARGE B-CELL LYMPHOMA
     Route: 065
  7. DIPHENHYDRAMINE HCL [Concomitant]
     Route: 042
     Dates: start: 20131031, end: 20131031
  8. DIPHENHYDRAMINE HCL [Concomitant]
     Route: 042
     Dates: start: 20130822, end: 20130822
  9. DIPHENHYDRAMINE HCL [Concomitant]
     Route: 042
     Dates: start: 20130912, end: 20130912
  10. DIPHENHYDRAMINE HCL [Concomitant]
     Route: 042
     Dates: start: 20131122, end: 20131122
  11. PAROL (TURKEY) [Concomitant]
     Route: 048
     Dates: start: 20131031, end: 20131031
  12. PAROL (TURKEY) [Concomitant]
     Route: 048
     Dates: start: 20130801, end: 20130801
  13. PAROL (TURKEY) [Concomitant]
     Route: 048
     Dates: start: 20130722, end: 20130822
  14. PAROL (TURKEY) [Concomitant]
     Route: 048
     Dates: start: 20130912, end: 20130912
  15. PAROL (TURKEY) [Concomitant]
     Route: 048
     Dates: start: 20131122, end: 20131122
  16. BITERAL [Concomitant]
     Route: 048
     Dates: start: 20131101
  17. NORVASC [Concomitant]
     Route: 048
     Dates: start: 20131101
  18. MESNA [Concomitant]
     Route: 042
     Dates: start: 20130801, end: 20130801
  19. MESNA [Concomitant]
     Route: 042
     Dates: start: 20130822, end: 20130822
  20. MESNA [Concomitant]
     Route: 042
     Dates: start: 20130912, end: 20130912
  21. MESNA [Concomitant]
     Route: 042
     Dates: start: 20131003, end: 20131003
  22. MESNA [Concomitant]
     Route: 042
     Dates: start: 20131031, end: 20131031
  23. MESNA [Concomitant]
     Route: 042
     Dates: start: 20131122, end: 20131122
  24. GRANISETRON [Concomitant]
     Route: 042
     Dates: start: 20130801, end: 20130801
  25. AVIL [Concomitant]
     Route: 042
     Dates: start: 20130801, end: 20130801
  26. AVIL [Concomitant]
     Route: 042
     Dates: start: 20131213, end: 20131213
  27. AVIL [Concomitant]
     Route: 042
     Dates: start: 20140103, end: 20140103
  28. TANTUM [Concomitant]
     Route: 048
     Dates: start: 20130801
  29. FLUZOLE (TURKEY) [Concomitant]
     Route: 048
     Dates: start: 20130802
  30. AUGMENTIN [Concomitant]
     Route: 048
     Dates: start: 20131101, end: 20131114
  31. AUGMENTIN [Concomitant]
     Route: 048
     Dates: start: 20140120
  32. PREDNOL (PREDNISOLONE) [Concomitant]
     Route: 042
     Dates: start: 20131213, end: 20131213
  33. PREDNOL (PREDNISOLONE) [Concomitant]
     Route: 042
     Dates: start: 20140103, end: 20140103

REACTIONS (1)
  - Cellulitis [Recovered/Resolved]
